FAERS Safety Report 13300770 (Version 1)
Quarter: 2017Q1

REPORT INFORMATION
  Report Type: Report from Study
  Country: IT (occurrence: IT)
  Receive Date: 20170307
  Receipt Date: 20170307
  Transmission Date: 20170428
  Serious: Yes (Death, Other)
  Sender: FDA-Public Use
  Company Number: IT-ADIENNEP-2017AD000038

PATIENT
  Sex: Male

DRUGS (2)
  1. CARMUSTINE [Suspect]
     Active Substance: CARMUSTINE
     Indication: BONE MARROW CONDITIONING REGIMEN
  2. THIOTEPA. [Suspect]
     Active Substance: THIOTEPA
     Indication: BONE MARROW CONDITIONING REGIMEN

REACTIONS (11)
  - Thrombocytopenia [Unknown]
  - Sepsis [Fatal]
  - Coagulopathy [Unknown]
  - Nausea [Unknown]
  - Anaemia [Unknown]
  - Granulocytopenia [Unknown]
  - Nephropathy toxic [Unknown]
  - Hepatotoxicity [Unknown]
  - Leukopenia [Unknown]
  - Diarrhoea [Unknown]
  - Stomatitis [Unknown]
